FAERS Safety Report 9415768 (Version 1)
Quarter: 2013Q3

REPORT INFORMATION
  Report Type: Spontaneous
  Country: CA (occurrence: CA)
  Receive Date: 20130724
  Receipt Date: 20130724
  Transmission Date: 20140515
  Serious: Yes (Hospitalization)
  Sender: FDA-Public Use
  Company Number: CA-ASTRAZENECA-2013SE51567

PATIENT
  Age: 60 Year
  Sex: Female
  Weight: 72.6 kg

DRUGS (8)
  1. ATACAND PLUS [Suspect]
     Dosage: 16 + 12.5 MG
     Route: 048
  2. ATACAND PLUS [Suspect]
     Dosage: 32 + 12.5 MG
     Route: 048
     Dates: start: 20130525
  3. ATACAND PLUS [Suspect]
     Dosage: 16 + 12.5 MG
     Route: 048
  4. ATACAND [Suspect]
     Route: 048
  5. ATACAND [Suspect]
     Route: 048
  6. ASA [Concomitant]
     Indication: ATRIOVENTRICULAR SEPTAL DEFECT
     Route: 048
  7. CALCIUM + VIT D [Concomitant]
  8. OMEGA 3 [Concomitant]

REACTIONS (2)
  - Angioedema [Recovered/Resolved]
  - Reaction to colouring [Unknown]
